FAERS Safety Report 12698756 (Version 1)
Quarter: 2016Q3

REPORT INFORMATION
  Report Type: Spontaneous
  Country: FR (occurrence: FR)
  Receive Date: 20160830
  Receipt Date: 20160830
  Transmission Date: 20161109
  Serious: Yes (Life-Threatening, Hospitalization)
  Sender: FDA-Public Use
  Company Number: FR-PFIZER INC-2016298041

PATIENT
  Age: 43 Year
  Sex: Female

DRUGS (1)
  1. NOREPINEPHRINE BITARTRATE. [Suspect]
     Active Substance: NOREPINEPHRINE BITARTRATE
     Dosage: 16 MG, UNK
     Route: 040

REACTIONS (10)
  - Hypotension [Recovered/Resolved]
  - Right ventricular failure [Recovered/Resolved]
  - Vasoconstriction [Recovered/Resolved]
  - Myocardial ischaemia [Recovered/Resolved]
  - Tachycardia [Recovered/Resolved]
  - Pulmonary oedema [Recovered/Resolved]
  - Accidental overdose [Unknown]
  - Hypertensive crisis [Recovered/Resolved]
  - Drug dispensing error [Unknown]
  - Wrong drug administered [Unknown]
